FAERS Safety Report 4840952-9 (Version None)
Quarter: 2005Q4

REPORT INFORMATION
  Report Type: 
  Country: None (occurrence: None)
  Receive Date: 20051130
  Receipt Date: 20050804
  Transmission Date: 20060501
  Serious: No
  Sender: FDA-Public Use
  Company Number: US-BRISTOL-MYERS SQUIBB COMPANY-13063706

PATIENT
  Age: 62 Year
  Sex: Female
  Weight: 52 kg

DRUGS (6)
  1. ABILIFY [Suspect]
     Indication: BIPOLAR DISORDER
     Route: 048
     Dates: start: 20050401
  2. LEVOTHYROXINE SODIUM [Concomitant]
     Route: 048
  3. RANITIDINE HCL [Concomitant]
  4. BENZTROPINE MESYLATE [Concomitant]
  5. ALENDRONATE SODIUM [Concomitant]
  6. ASPIRIN [Concomitant]
     Route: 048

REACTIONS (1)
  - BLOOD GLUCOSE INCREASED [None]
